FAERS Safety Report 6676489-4 (Version None)
Quarter: 2010Q2

REPORT INFORMATION
  Report Type: 
  Country: None (occurrence: None)
  Receive Date: 20100412
  Receipt Date: 20100406
  Transmission Date: 20101027
  Serious: Yes (Death)
  Sender: FDA-Public Use
  Company Number: PHHY2010TW21395

PATIENT
  Age: 4 Year
  Sex: Female

DRUGS (3)
  1. CYCLOSPORINE [Suspect]
     Indication: INTERSTITIAL LUNG DISEASE
     Dosage: 5 MG/KG PER DAY
     Route: 048
  2. METHYLPREDNISOLONE [Suspect]
     Indication: INTERSTITIAL LUNG DISEASE
     Route: 042
  3. POLYGAM S/D [Concomitant]
     Indication: INTERSTITIAL LUNG DISEASE
     Dosage: 1 MG/KG DAILY
     Route: 042

REACTIONS (4)
  - DISEASE PROGRESSION [None]
  - INTERSTITIAL LUNG DISEASE [None]
  - RESPIRATORY FAILURE [None]
  - SEPSIS [None]
